FAERS Safety Report 8061721-5 (Version None)
Quarter: 2012Q1

REPORT INFORMATION
  Report Type: 
  Country: None (occurrence: None)
  Receive Date: 20120123
  Receipt Date: 20120113
  Transmission Date: 20120608
  Serious: Yes (Hospitalization)
  Sender: FDA-Public Use
  Company Number: US-BIOGENIDEC-2011BI039926

PATIENT
  Age: 61 Year
  Sex: Male

DRUGS (6)
  1. AVONEX [Suspect]
     Indication: MULTIPLE SCLEROSIS
     Route: 030
     Dates: start: 20041120
  2. AVONEX [Suspect]
     Route: 030
  3. AVONEX [Suspect]
     Route: 030
  4. AVONEX [Suspect]
     Route: 030
     Dates: start: 20111001
  5. AVONEX [Suspect]
     Route: 030
  6. AVONEX [Suspect]
     Route: 030

REACTIONS (9)
  - MUSCLE SPASMS [None]
  - COW'S MILK INTOLERANCE [None]
  - ADVERSE DRUG REACTION [None]
  - DIVERTICULITIS INTESTINAL HAEMORRHAGIC [None]
  - BLOOD POTASSIUM DECREASED [None]
  - INFLUENZA LIKE ILLNESS [None]
  - PYREXIA [None]
  - COLITIS [None]
  - AMNESIA [None]
